FAERS Safety Report 14236290 (Version 1)
Quarter: 2017Q4

REPORT INFORMATION
  Report Type: Spontaneous
  Country: FR (occurrence: FR)
  Receive Date: 20171129
  Receipt Date: 20171129
  Transmission Date: 20180321
  Serious: Yes (Other)
  Sender: FDA-Public Use
  Company Number: FR-MYLANLABS-2017M1074841

PATIENT
  Sex: Male

DRUGS (9)
  1. VINORELBINE [Concomitant]
     Active Substance: VINORELBINE\VINORELBINE TARTRATE
     Indication: HODGKIN^S DISEASE
     Dosage: GVD REGIMEN; RECEIVED 5 CYCLES
     Route: 065
  2. CYTARABINE. [Concomitant]
     Active Substance: CYTARABINE
     Indication: HODGKIN^S DISEASE
     Dosage: DHAC REGIMEN; RECEIVED 2 CYCLES
     Route: 065
  3. BRENTUXIMAB VEDOTIN [Suspect]
     Active Substance: BRENTUXIMAB VEDOTIN
     Indication: HODGKIN^S DISEASE
     Dosage: 4 CYCLES
     Route: 050
  4. GANCICLOVIR. [Suspect]
     Active Substance: GANCICLOVIR
     Dosage: 10 MG/KG/DAY
     Route: 042
  5. CARBOPLATIN. [Concomitant]
     Active Substance: CARBOPLATIN
     Indication: HODGKIN^S DISEASE
     Dosage: DHAC REGIMEN; RECEIVED 2 CYCLES
     Route: 065
  6. DOXIL [Concomitant]
     Active Substance: DOXORUBICIN HYDROCHLORIDE
     Indication: HODGKIN^S DISEASE
     Dosage: GVD REGIMEN; RECEIVED 5 CYCLES
     Route: 065
  7. DEXAMETHASONE. [Suspect]
     Active Substance: DEXAMETHASONE
     Indication: HODGKIN^S DISEASE
     Dosage: DHAC REGIMEN; RECEIVED 2 CYCLES
     Route: 065
  8. GANCICLOVIR. [Suspect]
     Active Substance: GANCICLOVIR
     Indication: CHORIORETINITIS
     Dosage: UNK
     Route: 047
  9. GEMCITABINE [Concomitant]
     Active Substance: GEMCITABINE\GEMCITABINE HYDROCHLORIDE
     Indication: HODGKIN^S DISEASE
     Dosage: GVD REGIMEN; RECEIVED 5 CYCLES
     Route: 065

REACTIONS (6)
  - Chorioretinitis [Unknown]
  - Cell death [Unknown]
  - Cholestasis [Unknown]
  - Blindness [Unknown]
  - Cytomegalovirus infection [Unknown]
  - Neutropenia [Recovered/Resolved]
